FAERS Safety Report 7158226-2 (Version None)
Quarter: 2010Q4

REPORT INFORMATION
  Report Type: 
  Country: None (occurrence: None)
  Receive Date: 20101214
  Receipt Date: 20100607
  Transmission Date: 20110411
  Serious: No
  Sender: FDA-Public Use
  Company Number: US-ASTRAZENECA-2010SE13508

PATIENT
  Sex: Female

DRUGS (1)
  1. CRESTOR [Suspect]
     Route: 048
     Dates: start: 20040423, end: 20041201

REACTIONS (3)
  - MALAISE [None]
  - PAIN [None]
  - VISION BLURRED [None]
